FAERS Safety Report 9848569 (Version 1)
Quarter: 2014Q1

REPORT INFORMATION
  Report Type: Spontaneous
  Country: FR (occurrence: FR)
  Receive Date: 20140128
  Receipt Date: 20140128
  Transmission Date: 20141002
  Serious: Yes (Death, Life-Threatening, Hospitalization)
  Sender: FDA-Public Use
  Company Number: FR-JNJFOC-20140111787

PATIENT
  Sex: Male

DRUGS (5)
  1. EPITOMAX [Suspect]
     Indication: SEVERE MYOCLONIC EPILEPSY OF INFANCY
     Route: 048
     Dates: start: 2011
  2. DIACOMIT [Suspect]
     Indication: PRODUCT USED FOR UNKNOWN INDICATION
     Dosage: 250-250-500MG
     Route: 048
     Dates: start: 2011
  3. MICROPAKINE [Suspect]
     Indication: PRODUCT USED FOR UNKNOWN INDICATION
     Route: 048
     Dates: start: 2011
  4. URBANYL [Suspect]
     Indication: PRODUCT USED FOR UNKNOWN INDICATION
     Dosage: 2.5 + 1.25 MG ONCE A DAY ON EVENING
     Route: 048
     Dates: start: 2011
  5. PARACETAMOL [Suspect]
     Indication: FEBRILE CONVULSION
     Route: 048
     Dates: start: 20131220

REACTIONS (5)
  - Death [Fatal]
  - Hepatitis fulminant [Fatal]
  - Lipase increased [Fatal]
  - Vessel puncture site haemorrhage [Fatal]
  - Gastrointestinal haemorrhage [Fatal]
